FAERS Safety Report 9553155 (Version 1)
Quarter: 2013Q3

REPORT INFORMATION
  Report Type: Spontaneous
  Country: US (occurrence: None)
  Receive Date: 20130724
  Receipt Date: 20130724
  Transmission Date: 20140515
  Serious: Yes (Other)
  Sender: FDA-Public Use
  Company Number: PHEH2013US008066

PATIENT
  Age: 53 Year
  Sex: Male

DRUGS (1)
  1. GLEEVEC (IMATINIB) UNKNOWN [Suspect]
     Dates: start: 20130115, end: 20130326

REACTIONS (5)
  - Intracranial pressure increased [None]
  - Oedema peripheral [None]
  - Fatigue [None]
  - Nausea [None]
  - Decreased appetite [None]
